FAERS Safety Report 9783756 (Version 1)
Quarter: 2013Q4

REPORT INFORMATION
  Report Type: Spontaneous
  Country: US (occurrence: None)
  Receive Date: 20131223
  Receipt Date: 20131223
  Transmission Date: 20140711
  Serious: No
  Sender: FDA-Public Use
  Company Number: EUS-2012-00838

PATIENT
  Sex: 0

DRUGS (4)
  1. ASPARAGINASE [Suspect]
     Indication: ACUTE LYMPHOCYTIC LEUKAEMIA
     Dosage: 6000 U/M2 ON DAYS 17-28
  2. DAUNORUBICIN [Concomitant]
  3. VINCRISTINE (VINCRISTINE) (VINCRISTINE) [Concomitant]
  4. PREDNISONE (PREDNISONE) (PREDNISONE) [Concomitant]

REACTIONS (2)
  - Liver disorder [None]
  - Deep vein thrombosis [None]
